FAERS Safety Report 6218567-X (Version None)
Quarter: 2009Q2

REPORT INFORMATION
  Report Type: 
  Country: None (occurrence: None)
  Receive Date: 20090608
  Receipt Date: 20090528
  Transmission Date: 20091009
  Serious: Yes (Hospitalization)
  Sender: FDA-Public Use
  Company Number: PHHO2009AU06688

PATIENT
  Weight: 51.5 kg

DRUGS (3)
  1. ERL 080A ERL+TAB [Suspect]
     Indication: LUNG TRANSPLANT
  2. RAD 666 RAD+TAB+PTR [Suspect]
     Indication: LUNG TRANSPLANT
     Dosage: 0.5 MG, BID
     Route: 048
     Dates: start: 20081104, end: 20090505
  3. CYCLOSPORINE [Suspect]
     Indication: LUNG TRANSPLANT

REACTIONS (19)
  - ACUTE RESPIRATORY FAILURE [None]
  - BLOOD CREATININE INCREASED [None]
  - CARDIAC FAILURE [None]
  - CARDIOMYOPATHY ACUTE [None]
  - DIARRHOEA [None]
  - DRUG TOXICITY [None]
  - DYSPHASIA [None]
  - DYSPNOEA [None]
  - FEELING OF BODY TEMPERATURE CHANGE [None]
  - HAEMOLYTIC URAEMIC SYNDROME [None]
  - HAEMOPTYSIS [None]
  - INFLUENZA [None]
  - LIVER DISORDER [None]
  - LUNG INFILTRATION [None]
  - PAIN [None]
  - PULMONARY FUNCTION TEST DECREASED [None]
  - RENAL FAILURE ACUTE [None]
  - RENAL IMPAIRMENT [None]
  - RHINORRHOEA [None]
